FAERS Safety Report 6145157-X (Version None)
Quarter: 2009Q2

REPORT INFORMATION
  Report Type: 
  Country: None (occurrence: None)
  Receive Date: 20090401
  Receipt Date: 20090205
  Transmission Date: 20091009
  Serious: Yes (Hospitalization)
  Sender: FDA-Public Use
  Company Number: 227258

PATIENT
  Age: 69 Year
  Sex: Female
  Weight: 61.5 kg

DRUGS (12)
  1. LEUCOVORIN CALCIUM [Suspect]
     Indication: COLORECTAL CANCER METASTATIC
     Dosage: 720 MG, 1 IN 2 WEEK, INTRAVENOUS
     Route: 042
     Dates: start: 20080107
  2. IRINOTECAN HCL [Suspect]
     Indication: COLORECTAL CANCER METASTATIC
     Dosage: 324 MG, 1 IN 2 WEEK, INTRAVENOUS
     Route: 042
     Dates: start: 20080107
  3. FLUOROURACIL [Suspect]
     Indication: COLORECTAL CANCER METASTATIC
     Dosage: 700 MG, 1 IN 2 WEEK, INTRAVENOUS; 4320 MG, 1 IN 2 WEEK, INTRAVENOUS
     Route: 042
     Dates: start: 20080107
  4. (BEVACIZUMAB) [Suspect]
     Indication: COLORECTAL CANCER METASTATIC
     Dosage: 375 MG, 1 IN 2 WEEK, INTRAVENOUS
     Route: 042
     Dates: start: 20080107
  5. PRAVASTATIN [Concomitant]
  6. SYMBICORT [Concomitant]
  7. SPIRIVA [Concomitant]
  8. OMEPRAZOLE [Concomitant]
  9. (ORTHANGIN /01016201/) [Concomitant]
  10. (TORASEMIDE) [Concomitant]
  11. (OPTOVIT /00110501/) [Concomitant]
  12. TOCOPHEROL CONCENTRATE CAP [Concomitant]

REACTIONS (5)
  - FAECALOMA [None]
  - FLATULENCE [None]
  - GAMMA-GLUTAMYLTRANSFERASE INCREASED [None]
  - HAEMOGLOBIN DECREASED [None]
  - SUBILEUS [None]
